FAERS Safety Report 15222565 (Version 1)
Quarter: 2018Q3

REPORT INFORMATION
  Report Type: Spontaneous
  Country: IT (occurrence: IT)
  Receive Date: 20180731
  Receipt Date: 20180731
  Transmission Date: 20181010
  Serious: Yes (Other)
  Sender: FDA-Public Use
  Company Number: IT-MYLANLABS-2017M1017195

PATIENT
  Age: 80 Year
  Sex: Female

DRUGS (1)
  1. QUETIAPINA MYLAN GENERICS 100 MG COMPRESSE RIVESTITE CON FILM [Suspect]
     Active Substance: QUETIAPINE
     Indication: SENILE DEMENTIA

REACTIONS (2)
  - No adverse event [Unknown]
  - Drug effect decreased [Unknown]

NARRATIVE: CASE EVENT DATE: 20170220
